FAERS Safety Report 10210136 (Version 1)
Quarter: 2014Q2

REPORT INFORMATION
  Report Type: Spontaneous
  Country: US (occurrence: US)
  Receive Date: 20140602
  Receipt Date: 20140602
  Transmission Date: 20141212
  Serious: Yes (Hospitalization)
  Sender: FDA-Public Use
  Company Number: US-AMGEN-USASP2014039601

PATIENT
  Sex: Male

DRUGS (3)
  1. PROLIA [Suspect]
     Indication: OSTEOPOROSIS
     Dosage: UNK
     Route: 065
     Dates: start: 20140521
  2. PLAVIX [Concomitant]
  3. ASPIRIN [Concomitant]

REACTIONS (2)
  - Chest pain [Unknown]
  - Injection site discolouration [Unknown]
